FAERS Safety Report 10738513 (Version 1)
Quarter: 2015Q1

REPORT INFORMATION
  Report Type: Spontaneous
  Country: US (occurrence: None)
  Receive Date: 20150112
  Receipt Date: 20150112
  Transmission Date: 20150721
  Serious: Yes (Hospitalization)
  Sender: FDA-Public Use
  Company Number: 1338900

PATIENT
  Age: 54 Year
  Sex: Male
  Weight: 92 kg

DRUGS (6)
  1. EPINEPHRINE (EPINEPHRINE) [Concomitant]
  2. ALTEPLASE (ALTEPLASE) [Suspect]
     Active Substance: ALTEPLASE
     Indication: PULMONARY EMBOLISM
     Route: 040
  3. ATROPINE (ATROPINE) (UNKNOWN) (ATROPINE) [Concomitant]
     Active Substance: ATROPINE
  4. SODIUM BICARBONATE (SODIUM BICARBONATE) [Concomitant]
  5. NORMAL SALINE (SODIUM CHLORIDE) [Concomitant]
  6. NOREPINEPHRINE (NORADRENALINE) [Concomitant]

REACTIONS (1)
  - Lower gastrointestinal haemorrhage [None]
